FAERS Safety Report 17260802 (Version 2)
Quarter: 2020Q1

REPORT INFORMATION
  Report Type: Spontaneous
  Country: JP (occurrence: JP)
  Receive Date: 20200113
  Receipt Date: 20200127
  Transmission Date: 20200409
  Serious: Yes (Hospitalization)
  Sender: FDA-Public Use
  Company Number: JP-ABBVIE-20K-087-3228294-00

PATIENT
  Age: 50 Year
  Sex: Male

DRUGS (8)
  1. CAMOSTAT MESILATE [Concomitant]
     Active Substance: CAMOSTAT MESYLATE
     Indication: PRODUCT USED FOR UNKNOWN INDICATION
     Route: 048
  2. SODIUM ALGINATE [Concomitant]
     Active Substance: SODIUM ALGINATE
     Indication: PRODUCT USED FOR UNKNOWN INDICATION
     Route: 048
  3. HUMIRA [Suspect]
     Active Substance: ADALIMUMAB
     Indication: COLITIS ULCERATIVE
     Route: 058
  4. ALUMINIUM HYDROXIDE AND MAGNESIUM HYDROXIDE [Concomitant]
     Indication: PRODUCT USED FOR UNKNOWN INDICATION
     Route: 048
  5. PREDNISOLONE. [Suspect]
     Active Substance: PREDNISOLONE
     Indication: COLITIS ULCERATIVE
     Route: 048
  6. VONOPRAZAN FUMARATE [Concomitant]
     Active Substance: VONOPRAZAN FUMURATE
     Indication: GASTRIC PH DECREASED
     Route: 048
  7. REBAMIPIDE [Concomitant]
     Active Substance: REBAMIPIDE
     Indication: PRODUCT USED FOR UNKNOWN INDICATION
     Route: 048
  8. PREDNISOLONE. [Suspect]
     Active Substance: PREDNISOLONE
     Route: 048

REACTIONS (1)
  - Ulcer haemorrhage [Recovered/Resolved]
